FAERS Safety Report 5273538-5 (Version None)
Quarter: 2007Q1

REPORT INFORMATION
  Report Type: 
  Country: None (occurrence: None)
  Receive Date: 20070323
  Receipt Date: 20070312
  Transmission Date: 20070707
  Serious: Yes (Other)
  Sender: FDA-Public Use
  Company Number: PHNU2007DE00840

PATIENT
  Sex: Female

DRUGS (2)
  1. CLOZAPINE [Suspect]
     Indication: SCHIZOPHRENIA
     Dosage: 225 MG/DAY
     Route: 048
     Dates: start: 20070122, end: 20070212
  2. SEROQUEL [Concomitant]
     Indication: SCHIZOPHRENIA

REACTIONS (11)
  - ALANINE AMINOTRANSFERASE INCREASED [None]
  - ASPARTATE AMINOTRANSFERASE INCREASED [None]
  - BLOOD AMYLASE INCREASED [None]
  - C-REACTIVE PROTEIN INCREASED [None]
  - GAMMA-GLUTAMYLTRANSFERASE INCREASED [None]
  - GASTROINTESTINAL INFECTION [None]
  - LIPASE INCREASED [None]
  - LYMPHOPENIA [None]
  - NEUTROPHILIA [None]
  - PANCREATIC ENZYMES INCREASED [None]
  - TRANSAMINASES INCREASED [None]
